FAERS Safety Report 20313786 (Version 1)
Quarter: 2022Q1

REPORT INFORMATION
  Report Type: Spontaneous
  Country: US (occurrence: US)
  Receive Date: 20220109
  Receipt Date: 20220109
  Transmission Date: 20220424
  Serious: No
  Sender: FDA-Public Use
  Company Number: US-SANOFI-00708792

PATIENT
  Age: 58 Year
  Sex: Female

DRUGS (2)
  1. DUPILUMAB [Suspect]
     Active Substance: DUPILUMAB
     Indication: Dermatitis atopic
     Dosage: 600 MG, 1X
     Route: 058
     Dates: start: 20210512, end: 20210512
  2. DUPILUMAB [Suspect]
     Active Substance: DUPILUMAB
     Dosage: 300 MG, QOW
     Route: 058
     Dates: start: 202105

REACTIONS (8)
  - Sunburn [Recovering/Resolving]
  - Swelling [Unknown]
  - Periorbital swelling [Unknown]
  - Circumoral swelling [Unknown]
  - Erythema [Unknown]
  - Dry skin [Unknown]
  - Injection site pain [Unknown]
  - Blepharitis [Unknown]

NARRATIVE: CASE EVENT DATE: 20210701
